FAERS Safety Report 11540991 (Version 1)
Quarter: 2015Q3

REPORT INFORMATION
  Report Type: Spontaneous
  Country: US (occurrence: US)
  Receive Date: 20150923
  Receipt Date: 20150923
  Transmission Date: 20151125
  Serious: No
  Sender: FDA-Public Use
  Company Number: US-FRI-1000078226

PATIENT
  Age: 59 Year
  Sex: Male

DRUGS (4)
  1. AVYCAZ [Suspect]
     Active Substance: AVIBACTAM SODIUM\CEFTAZIDIME
     Indication: BACTERIAL TEST POSITIVE
     Route: 042
     Dates: start: 20150624, end: 20150706
  2. TIGECYCLINE. [Concomitant]
     Active Substance: TIGECYCLINE
  3. AMIKACIN [Concomitant]
     Active Substance: AMIKACIN
  4. AVYCAZ [Suspect]
     Active Substance: AVIBACTAM SODIUM\CEFTAZIDIME
     Indication: BACTERIAL TEST POSITIVE

REACTIONS (2)
  - Thrombocytopenia [Not Recovered/Not Resolved]
  - Off label use [Recovered/Resolved]

NARRATIVE: CASE EVENT DATE: 20150624
